FAERS Safety Report 5868588-1 (Version None)
Quarter: 2008Q3

REPORT INFORMATION
  Report Type: 
  Country: None (occurrence: None)
  Receive Date: 20080902
  Receipt Date: 20080902
  Transmission Date: 20090109
  Serious: Yes (Disabling)
  Sender: FDA-Public Use
  Company Number: None

PATIENT
  Sex: Female

DRUGS (2)
  1. FAMOTIDINE [Suspect]
     Indication: PROPHYLAXIS
     Dosage: 20MG IV QD
     Route: 042
  2. FAMOTIDINE [Suspect]
     Indication: STRESS ULCER
     Dosage: 20MG IV QD
     Route: 042

REACTIONS (1)
  - THROMBOCYTOPENIA [None]
